FAERS Safety Report 5754114-4 (Version None)
Quarter: 2008Q2

REPORT INFORMATION
  Report Type: 
  Country: None (occurrence: None)
  Receive Date: 20080530
  Receipt Date: 20080521
  Transmission Date: 20081010
  Serious: Yes (Hospitalization)
  Sender: FDA-Public Use
  Company Number: FR-ROCHE-566366

PATIENT
  Age: 78 Year
  Sex: Female

DRUGS (12)
  1. ROCEPHIN [Suspect]
     Dosage: FORM: INJECTABLE SOLUTION.
     Route: 042
     Dates: start: 20080116, end: 20080124
  2. LEXOMIL [Suspect]
     Indication: ANXIETY
     Dosage: DOSAGE REGIMEN: 'DAY1:1/2, DAY 2: 1/4-1/4-1/2, DAY3: 1/4-1/4'
     Route: 048
     Dates: start: 20080116, end: 20080118
  3. ACETAMINOPHEN [Suspect]
     Indication: PAIN
     Route: 048
     Dates: start: 20080118, end: 20080120
  4. LOVENOX [Suspect]
     Dosage: TOTAL DAILY DOSE: '4000 UI'. FORM: INJECTABLE SOLUTION.
     Route: 058
     Dates: start: 20080117, end: 20080124
  5. STALEVO 100 [Suspect]
     Indication: PARKINSON'S DISEASE
     Dosage: DOSAGE REGIMEN: '5 DOSES/DAY'
     Route: 048
  6. STALEVO 100 [Suspect]
     Dosage: DOSAGE REGIMEN: '5 DOSES/DAY'
     Route: 048
  7. STALEVO 100 [Suspect]
     Dosage: DOSAGE REGIMEN: '5 DOSES/DAY'
     Route: 048
  8. NULYTELY [Concomitant]
  9. NULYTELY [Concomitant]
  10. LEVOTHYROXINE SODIUM [Concomitant]
  11. VASTAREL [Concomitant]
  12. OFLOCET [Concomitant]

REACTIONS (1)
  - ORTHOSTATIC HYPOTENSION [None]
